FAERS Safety Report 6048132-9 (Version None)
Quarter: 2009Q1

REPORT INFORMATION
  Report Type: 
  Country: None (occurrence: None)
  Receive Date: 20090122
  Receipt Date: 20090122
  Transmission Date: 20090719
  Serious: No
  Sender: FDA-Public Use
  Company Number: None

PATIENT

DRUGS (1)
  1. NITROGLYCERIN IN DEXTROSE 5% [Suspect]
     Indication: ACUTE MYOCARDIAL INFARCTION
     Dosage: 50 ML IV
     Route: 042
     Dates: start: 20080120, end: 20090121

REACTIONS (2)
  - DRUG ADMINISTRATION ERROR [None]
  - MEDICATION ERROR [None]
